FAERS Safety Report 8535656 (Version 3)
Quarter: 2013Q2

REPORT INFORMATION
  Report Type: Spontaneous
  Country: US (occurrence: US)
  Receive Date: 20120430
  Receipt Date: 20130603
  Transmission Date: 20140414
  Serious: Yes (Life-Threatening, Hospitalization, Other)
  Sender: FDA-Public Use
  Company Number: US-US-EMD SERONO, INC.-7128769

PATIENT
  Age: 61 Year
  Sex: Male
  Weight: 66 kg

DRUGS (3)
  1. REBIF [Suspect]
     Indication: MULTIPLE SCLEROSIS
     Route: 058
     Dates: start: 20020826, end: 201204
  2. REBIF [Suspect]
     Route: 058
     Dates: start: 20120430
  3. BACLOFEN [Concomitant]
     Indication: MUSCLE SPASMS

REACTIONS (18)
  - Sepsis [Recovered/Resolved]
  - Pneumonia aspiration [Recovered/Resolved]
  - Myocardial infarction [Recovered/Resolved]
  - Ejection fraction decreased [Unknown]
  - Coronary artery occlusion [Recovered/Resolved]
  - Coronary artery stenosis [Recovered/Resolved]
  - Nephrolithiasis [Unknown]
  - Renal cyst [Unknown]
  - Cystitis [Recovered/Resolved]
  - Urinary tract infection [Recovered/Resolved]
  - Clostridium difficile infection [Recovered/Resolved]
  - Arthritis [Unknown]
  - Incision site complication [Recovered/Resolved]
  - Incision site infection [Recovered/Resolved]
  - Transient ischaemic attack [Unknown]
  - Convulsion [Recovered/Resolved]
  - Scar [Not Recovered/Not Resolved]
  - Injection site reaction [Not Recovered/Not Resolved]
